FAERS Safety Report 4987733-3 (Version None)
Quarter: 2006Q2

REPORT INFORMATION
  Report Type: 
  Country: None (occurrence: None)
  Receive Date: 20060428
  Receipt Date: 20060428
  Transmission Date: 20061013
  Serious: Yes (Life-Threatening, Other)
  Sender: FDA-Public Use
  Company Number: None

PATIENT
  Age: 56 Year
  Sex: Female
  Weight: 63.5036 kg

DRUGS (1)
  1. CREST SENSITIVITY MAXIUM STRENGTH PROCTOR AND GAMBLE, [Suspect]
     Indication: SENSITIVITY OF TEETH
     Dosage: 1 INCH STRIP ON TOOTHBRUSH BRUSH 2X A DAY
     Dates: start: 20060110, end: 20060323

REACTIONS (9)
  - CEREBROVASCULAR SPASM [None]
  - DIARRHOEA [None]
  - MALAISE [None]
  - MIGRAINE [None]
  - NERVOUS SYSTEM DISORDER [None]
  - ORAL INTAKE REDUCED [None]
  - PHARMACEUTICAL PRODUCT COMPLAINT [None]
  - SYNCOPE [None]
  - VOMITING [None]
